FAERS Safety Report 25740507 (Version 1)
Quarter: 2025Q3

REPORT INFORMATION
  Report Type: Spontaneous
  Country: US (occurrence: None)
  Receive Date: 20250828
  Receipt Date: 20250828
  Transmission Date: 20251021
  Serious: Yes (Life-Threatening, Hospitalization, Disabling)
  Sender: FDA-CTU
  Company Number: None

PATIENT
  Age: 5 Year
  Weight: 18 kg

DRUGS (5)
  1. TENORMIN [Suspect]
     Active Substance: ATENOLOL
     Indication: Fallot^s tetralogy
     Dosage: FREQUENCY : EVERY 8 HOURS;?
  2. heart monitor [Concomitant]
  3. pulse oximetry [Concomitant]
  4. iv drip [Concomitant]
  5. nasal canula [Concomitant]

REACTIONS (9)
  - Overdose [None]
  - Bedridden [None]
  - Dyspnoea [None]
  - Victim of abuse [None]
  - Wrong product administered [None]
  - Product communication issue [None]
  - Oxygen saturation decreased [None]
  - Cyanosis [None]
  - Dose calculation error [None]
